FAERS Safety Report 6209882-4 (Version None)
Quarter: 2009Q2

REPORT INFORMATION
  Report Type: 
  Country: None (occurrence: None)
  Receive Date: 20090527
  Receipt Date: 20090519
  Transmission Date: 20091009
  Serious: Yes (Other)
  Sender: FDA-Public Use
  Company Number: VISP-NO-0905S-0219

PATIENT
  Sex: Male

DRUGS (2)
  1. VISIPAQUE [Suspect]
     Indication: DRUG USE FOR UNKNOWN INDICATION
     Dosage: SINGLE DOSE,
     Dates: start: 20090501, end: 20090501
  2. VISIPAQUE [Suspect]

REACTIONS (4)
  - ABDOMINAL DISCOMFORT [None]
  - GASTROINTESTINAL PAIN [None]
  - MOVEMENT DISORDER [None]
  - PYREXIA [None]
